FAERS Safety Report 23471444 (Version 1)
Quarter: 2024Q1

REPORT INFORMATION
  Report Type: Spontaneous
  Country: US (occurrence: US)
  Receive Date: 20240202
  Receipt Date: 20240202
  Transmission Date: 20240409
  Serious: No
  Sender: FDA-Public Use
  Company Number: US-SA-SAC20240124001653

PATIENT
  Age: 2 Year
  Sex: Male

DRUGS (1)
  1. DUPIXENT [Suspect]
     Active Substance: DUPILUMAB
     Indication: Dermatitis atopic
     Dosage: 300 MG, Q4W
     Route: 058

REACTIONS (8)
  - Scratch [Not Recovered/Not Resolved]
  - Nipple exudate bloody [Not Recovered/Not Resolved]
  - Skin weeping [Not Recovered/Not Resolved]
  - Dry skin [Not Recovered/Not Resolved]
  - Rash macular [Unknown]
  - Skin irritation [Unknown]
  - Skin exfoliation [Not Recovered/Not Resolved]
  - Pruritus [Not Recovered/Not Resolved]
